FAERS Safety Report 6210978-1 (Version None)
Quarter: 2009Q2

REPORT INFORMATION
  Report Type: 
  Country: None (occurrence: None)
  Receive Date: 20090602
  Receipt Date: 20090522
  Transmission Date: 20091009
  Serious: Yes (Hospitalization)
  Sender: FDA-Public Use
  Company Number: US-CELGENEUS-163-21880-09050661

PATIENT
  Sex: Male

DRUGS (1)
  1. REVLIMID [Suspect]
     Indication: MULTIPLE MYELOMA
     Route: 048
     Dates: start: 20080214

REACTIONS (4)
  - DEHYDRATION [None]
  - PANCYTOPENIA [None]
  - PRESYNCOPE [None]
  - VENTRICULAR EXTRASYSTOLES [None]
